FAERS Safety Report 5449199-9 (Version None)
Quarter: 2007Q3

REPORT INFORMATION
  Report Type: 
  Country: None (occurrence: None)
  Receive Date: 20070911
  Receipt Date: 20070905
  Transmission Date: 20080115
  Serious: Yes (Hospitalization)
  Sender: FDA-Public Use
  Company Number: TH-BOEHRINGER INGELHEIM PHARMACEUTICALS, INC.-2002-BP-03912BP

PATIENT
  Sex: Male
  Weight: 59 kg

DRUGS (9)
  1. MICARDIS [Suspect]
     Indication: CARDIOVASCULAR DISORDER
     Route: 048
     Dates: start: 20020712, end: 20020715
  2. MICARDIS [Suspect]
     Indication: CEREBROVASCULAR ACCIDENT PROPHYLAXIS
  3. RAMIPRIL [Suspect]
     Indication: CARDIOVASCULAR DISORDER
     Route: 048
     Dates: start: 20020712, end: 20020715
  4. RAMIPRIL [Suspect]
     Indication: CEREBROVASCULAR ACCIDENT PROPHYLAXIS
  5. LANOXIN [Concomitant]
  6. LASIX [Concomitant]
  7. PLAVIX [Concomitant]
  8. IMDUR [Concomitant]
  9. ASPENT-M (ASPIRIN) [Concomitant]

REACTIONS (1)
  - HYPOTENSION [None]
